FAERS Safety Report 20175076 (Version 1)
Quarter: 2021Q4

REPORT INFORMATION
  Report Type: Spontaneous
  Country: US (occurrence: None)
  Receive Date: 20211210
  Receipt Date: 20211210
  Transmission Date: 20220303
  Serious: Yes (Hospitalization)
  Sender: FDA-Public Use
  Company Number: None

PATIENT
  Age: 74 Year
  Sex: Female

DRUGS (13)
  1. GILENYA [Suspect]
     Active Substance: FINGOLIMOD HYDROCHLORIDE
     Indication: Multiple sclerosis
     Dosage: FREQUENCY : DAILY;?
     Route: 048
     Dates: start: 20150715
  2. ANASTROZOLE [Concomitant]
  3. ASPIRIN LOW [Concomitant]
  4. CALCIUM MAGN [Concomitant]
  5. CLONAZEP ODT [Concomitant]
  6. CRANBERRY [Concomitant]
  7. CYMBALTA [Concomitant]
  8. LOSARTAN-POT [Concomitant]
  9. MULTIVITAMIN LIQ MINERAL [Concomitant]
  10. OMEPRAZOLE [Concomitant]
  11. PROBIOTICS NOS [Concomitant]
     Active Substance: PROBIOTICS NOS
  12. RECLAST [Concomitant]
  13. VITAMIN D [Concomitant]
     Indication: Multiple sclerosis
     Dosage: FREQUENCY : DAILY;?
     Route: 048
     Dates: start: 20150715

REACTIONS (3)
  - Fatigue [None]
  - Depression [None]
  - Fall [None]

NARRATIVE: CASE EVENT DATE: 20210101
